FAERS Safety Report 9369717 (Version 1)
Quarter: 2013Q2

REPORT INFORMATION
  Report Type: Spontaneous
  Country: GB (occurrence: GB)
  Receive Date: 20130626
  Receipt Date: 20130626
  Transmission Date: 20140414
  Serious: Yes (Hospitalization, Other)
  Sender: FDA-Public Use
  Company Number: GB-ROXANE LABORATORIES, INC.-2013-RO-01026RO

PATIENT
  Age: 73 Year
  Sex: Male

DRUGS (8)
  1. AZATHIOPRINE [Suspect]
     Indication: GLOMERULONEPHRITIS PROLIFERATIVE
     Dosage: 125 MG
  2. PREDNISOLONE [Concomitant]
     Indication: GLOMERULONEPHRITIS PROLIFERATIVE
     Dosage: 15 MG
  3. LISINOPRIL [Concomitant]
     Dosage: 1.25 MG
  4. COTRIMOXAZOLE [Concomitant]
     Indication: PROPHYLAXIS
     Dosage: 480 MG
  5. GLICLAZIDE [Concomitant]
     Dosage: 80 MG
  6. FOLIC ACID [Concomitant]
     Dosage: 10 MG
  7. HYDROXOCOBALAMIN [Concomitant]
  8. RANITIDINE [Concomitant]
     Dosage: 300 MG

REACTIONS (3)
  - Drug hypersensitivity [Recovered/Resolved]
  - Septic shock [Recovered/Resolved]
  - Encephalopathy [Recovered/Resolved]
